FAERS Safety Report 11793372 (Version 1)
Quarter: 2015Q4

REPORT INFORMATION
  Report Type: Spontaneous
  Country: US (occurrence: None)
  Receive Date: 20151201
  Receipt Date: 20151201
  Transmission Date: 20160305
  Serious: Yes (Other)
  Sender: FDA-Public Use
  Company Number: None

PATIENT
  Age: 48 Year
  Sex: Female

DRUGS (1)
  1. XELODA [Suspect]
     Active Substance: CAPECITABINE
     Dosage: TWICE DAILY 21 DAY CYCLE
     Route: 048

REACTIONS (3)
  - Peripheral swelling [None]
  - Tenderness [None]
  - Diarrhoea [None]

NARRATIVE: CASE EVENT DATE: 20151130
